FAERS Safety Report 9314527 (Version 2)
Quarter: 2014Q1

REPORT INFORMATION
  Report Type: Spontaneous
  Country: CO (occurrence: CO)
  Receive Date: 20130529
  Receipt Date: 20140324
  Transmission Date: 20141002
  Serious: Yes (Other)
  Sender: FDA-Public Use
  Company Number: CO-AMGEN-COLSP2013037690

PATIENT
  Age: 45 Year
  Sex: Female

DRUGS (3)
  1. ENBREL [Suspect]
     Indication: RHEUMATOID ARTHRITIS
     Dosage: 50 MG, WEEKLY
     Route: 058
     Dates: start: 2009, end: 201303
  2. ENBREL [Suspect]
     Dosage: 50 MG, EVERY 2 WEEKS
     Route: 058
  3. ENBREL [Suspect]
     Dosage: UNK
     Route: 065
     Dates: start: 201303

REACTIONS (3)
  - Joint destruction [Not Recovered/Not Resolved]
  - Injection site pain [Recovered/Resolved]
  - Influenza [Recovered/Resolved]
